FAERS Safety Report 8287788-7 (Version None)
Quarter: 2012Q2

REPORT INFORMATION
  Report Type: 
  Country: None (occurrence: None)
  Receive Date: 20120416
  Receipt Date: 20120412
  Transmission Date: 20120825
  Serious: Yes (Hospitalization, Other)
  Sender: FDA-Public Use
  Company Number: US-MERCK-1201USA00804

PATIENT
  Age: 72 Year
  Sex: Female

DRUGS (2)
  1. FOSAMAX [Suspect]
     Indication: OSTEOPOROSIS
     Route: 048
     Dates: start: 20010101, end: 20070101
  2. FOSAMAX [Suspect]
     Route: 048
     Dates: start: 20100801, end: 20110301

REACTIONS (38)
  - ARTHROPATHY [None]
  - CONSTIPATION [None]
  - SYNOVIAL CYST [None]
  - DRUG HYPERSENSITIVITY [None]
  - NEUROPATHY PERIPHERAL [None]
  - UPPER RESPIRATORY TRACT INFECTION [None]
  - GAIT DISTURBANCE [None]
  - LUMBAR SPINAL STENOSIS [None]
  - ANAEMIA [None]
  - DECREASED APPETITE [None]
  - OVARIAN CYST [None]
  - MUSCLE SPASMS [None]
  - LUNG NEOPLASM [None]
  - RIB FRACTURE [None]
  - RAYNAUD'S PHENOMENON [None]
  - DEEP VEIN THROMBOSIS [None]
  - HAEMORRHOIDS [None]
  - DEAFNESS [None]
  - ANXIETY [None]
  - HAEMANGIOMA OF LIVER [None]
  - MYELODYSPLASTIC SYNDROME [None]
  - SPINAL COLUMN STENOSIS [None]
  - MUSCULOSKELETAL CHEST PAIN [None]
  - FALL [None]
  - FEMUR FRACTURE [None]
  - PAIN IN EXTREMITY [None]
  - MACULAR DEGENERATION [None]
  - PYELONEPHRITIS [None]
  - HAEMORRHAGIC ANAEMIA [None]
  - BLEPHARITIS [None]
  - OSTEOARTHRITIS [None]
  - VISUAL IMPAIRMENT [None]
  - SENSORY DISTURBANCE [None]
  - COUGH [None]
  - HEADACHE [None]
  - VERTIGO [None]
  - URTICARIA [None]
  - HAEMATOMA [None]
